FAERS Safety Report 9221197 (Version 1)
Quarter: 2013Q2

REPORT INFORMATION
  Report Type: Spontaneous
  Country: US (occurrence: US)
  Receive Date: 20130410
  Receipt Date: 20130410
  Transmission Date: 20140414
  Serious: No
  Sender: FDA-Public Use
  Company Number: US-009507513-1304USA002372

PATIENT
  Age: 67 Year
  Sex: Female

DRUGS (1)
  1. SAPHRIS [Suspect]
     Indication: BIPOLAR I DISORDER
     Dosage: 5 MG, BID
     Route: 060
     Dates: start: 20130320, end: 20130327

REACTIONS (1)
  - Stomatitis [Recovered/Resolved]
